FAERS Safety Report 16008486 (Version 2)
Quarter: 2019Q1

REPORT INFORMATION
  Report Type: Report from Study
  Country: US (occurrence: US)
  Receive Date: 20190225
  Receipt Date: 20190318
  Transmission Date: 20190418
  Serious: Yes (Other)
  Sender: FDA-Public Use
  Company Number: US-ASTELLAS-2019US006452

PATIENT
  Age: 67 Year
  Sex: Male

DRUGS (1)
  1. ENZALUTAMIDE [Suspect]
     Active Substance: ENZALUTAMIDE
     Indication: PROSTATE CANCER
     Dosage: 120 MG, ONCE DAILY (3 PILLS)
     Route: 048
     Dates: start: 20181119

REACTIONS (3)
  - Underdose [Unknown]
  - Renal disorder [Unknown]
  - Testicular abscess [Recovered/Resolved]

NARRATIVE: CASE EVENT DATE: 20181119
